FAERS Safety Report 7191111-9 (Version None)
Quarter: 2010Q4

REPORT INFORMATION
  Report Type: 
  Country: None (occurrence: None)
  Receive Date: 20101221
  Receipt Date: 20101221
  Transmission Date: 20110411
  Serious: No
  Sender: FDA-Public Use
  Company Number: None

PATIENT
  Age: 55 Year
  Sex: Female
  Weight: 69.4003 kg

DRUGS (2)
  1. TRAZODONE HCL [Suspect]
     Indication: DEPRESSION
     Dosage: 250 MG AT HS PO
     Route: 048
     Dates: start: 20100101, end: 20101216
  2. TRAZODONE HCL [Suspect]
     Indication: INSOMNIA
     Dosage: 250 MG AT HS PO
     Route: 048
     Dates: start: 20100101, end: 20101216

REACTIONS (2)
  - CONDITION AGGRAVATED [None]
  - SLEEP APNOEA SYNDROME [None]
